FAERS Safety Report 9886256 (Version 2)
Quarter: 2014Q1

REPORT INFORMATION
  Report Type: Spontaneous
  Country: US (occurrence: US)
  Receive Date: 20140210
  Receipt Date: 20140210
  Transmission Date: 20141002
  Serious: No
  Sender: FDA-Public Use
  Company Number: US-BAXTER-2014BAX003752

PATIENT
  Sex: Male

DRUGS (3)
  1. DIANEAL LOW CALCIUM [Suspect]
     Indication: RENAL FAILURE CHRONIC
     Route: 033
     Dates: start: 2013
  2. DIANEAL LOW CALCIUM [Suspect]
     Indication: RENAL FAILURE CHRONIC
     Route: 033
     Dates: start: 201301
  3. HEPARIN [Concomitant]
     Indication: FIBRIN
     Dates: start: 2013

REACTIONS (3)
  - Nasopharyngitis [Recovering/Resolving]
  - Abdominal pain [Recovering/Resolving]
  - Procedural pain [Recovering/Resolving]
